FAERS Safety Report 18537347 (Version 2)
Quarter: 2021Q1

REPORT INFORMATION
  Report Type: Spontaneous
  Country: NL (occurrence: NL)
  Receive Date: 20201124
  Receipt Date: 20210203
  Transmission Date: 20210419
  Serious: Yes (Hospitalization, Other)
  Sender: FDA-Public Use
  Company Number: NL-AUROBINDO-AUR-APL-2020-057299

PATIENT
  Age: 80 Year
  Sex: Male
  Weight: 87.4 kg

DRUGS (8)
  1. CISPLATIN. [Concomitant]
     Active Substance: CISPLATIN
     Indication: PRODUCT USED FOR UNKNOWN INDICATION
     Dosage: UNK
     Route: 042
  2. CAPECITABINE. [Suspect]
     Active Substance: CAPECITABINE
     Indication: HER2 POSITIVE GASTRIC CANCER
     Dosage: 2000 MILLIGRAM,D1?14 IN 3 WEEKLY SCHEDULE
     Route: 048
     Dates: start: 20200728
  3. FLUOROURACIL. [Concomitant]
     Active Substance: FLUOROURACIL
     Indication: PRODUCT USED FOR UNKNOWN INDICATION
     Dosage: UNK
     Route: 042
  4. OXALIPLATIN. [Suspect]
     Active Substance: OXALIPLATIN
     Indication: HER2 POSITIVE GASTRIC CANCER
     Dosage: 263 MILLIGRAM, MOST RECENT DOSE OF OXLAIPLATION PRIOR TO SAE ONSET ON 07/SEP/2020
     Route: 042
     Dates: start: 20200728
  5. DOCETAXEL. [Concomitant]
     Active Substance: DOCETAXEL
     Indication: PRODUCT USED FOR UNKNOWN INDICATION
     Dosage: UNK
     Route: 042
  6. LEUCOVORIN. [Concomitant]
     Active Substance: LEUCOVORIN
     Indication: PRODUCT USED FOR UNKNOWN INDICATION
     Dosage: UNK
     Route: 042
  7. PERTUZUMAB. [Concomitant]
     Active Substance: PERTUZUMAB
     Indication: PRODUCT USED FOR UNKNOWN INDICATION
     Dosage: UNK
     Route: 042
  8. TRASTUZUMAB. [Concomitant]
     Active Substance: TRASTUZUMAB
     Indication: PRODUCT USED FOR UNKNOWN INDICATION
     Dosage: UNK
     Route: 042

REACTIONS (2)
  - Anastomotic leak [Recovering/Resolving]
  - Haemorrhage [Recovered/Resolved]

NARRATIVE: CASE EVENT DATE: 20201026
